FAERS Safety Report 18463211 (Version 1)
Quarter: 2020Q4

REPORT INFORMATION
  Report Type: Spontaneous
  Country: US (occurrence: US)
  Receive Date: 20201104
  Receipt Date: 20201104
  Transmission Date: 20210114
  Serious: Yes (Other)
  Sender: FDA-Public Use
  Company Number: US-SLATE RUN PHARMACEUTICALS-20US000312

PATIENT

DRUGS (3)
  1. PREDNISONE. [Concomitant]
     Active Substance: PREDNISONE
     Indication: RHEUMATOID ARTHRITIS
     Route: 065
  2. METHOTREXATE. [Concomitant]
     Active Substance: METHOTREXATE
     Indication: RHEUMATOID ARTHRITIS
     Route: 065
  3. VORICONAZOLE. [Suspect]
     Active Substance: VORICONAZOLE
     Indication: BRONCHOPULMONARY ASPERGILLOSIS
     Route: 042

REACTIONS (8)
  - Bronchopleural fistula [Unknown]
  - Procedural pneumothorax [Unknown]
  - Pleural effusion [Unknown]
  - Neisseria infection [Unknown]
  - Liver injury [Unknown]
  - Dysphagia [Unknown]
  - Alpha haemolytic streptococcal infection [Unknown]
  - Atrial fibrillation [Unknown]
